FAERS Safety Report 11279799 (Version 1)
Quarter: 2015Q3

REPORT INFORMATION
  Report Type: Spontaneous
  Country: JP (occurrence: JP)
  Receive Date: 20150717
  Receipt Date: 20150717
  Transmission Date: 20151125
  Serious: Yes (Hospitalization, Other)
  Sender: FDA-Public Use
  Company Number: JP-PFIZER INC-2015236599

PATIENT
  Age: 56 Year
  Sex: Male
  Weight: 62 kg

DRUGS (28)
  1. CAMPTO [Suspect]
     Active Substance: IRINOTECAN
     Dosage: 250 MG, 1X/DAY, 250 MG/BODY (148 MG/M2)
     Route: 041
     Dates: start: 20140425, end: 20140425
  2. LEVOFOLINATE [Suspect]
     Active Substance: LEVOLEUCOVORIN CALCIUM
     Dosage: 330 MG, 1X/DAY, 330 MG/BODY (195.4 MG/M2)
     Route: 041
     Dates: start: 20140515, end: 20140515
  3. 5-FU [Concomitant]
     Active Substance: FLUOROURACIL
     Dosage: UNK, 4060 MG/BODY/D1-2 (2403.8 MG/M2/D1-2)
     Dates: start: 20140116, end: 20140703
  4. CAMPTO [Suspect]
     Active Substance: IRINOTECAN
     Indication: PANCREATIC CARCINOMA
     Dosage: 250 MG, 1X/DAY, 250 MG/BODY (148 MG/M2)
     Route: 041
     Dates: start: 20140116, end: 20140116
  5. CAMPTO [Suspect]
     Active Substance: IRINOTECAN
     Dosage: 250 MG, 1X/DAY, 250 MG/BODY (148 MG/M2)
     Route: 041
     Dates: start: 20140130, end: 20140130
  6. ELPLAT [Suspect]
     Active Substance: OXALIPLATIN
     Dosage: 140 MG, 1X/DAY, 140 MG/BODY (82.9 MG/M2)
     Route: 041
     Dates: start: 20140425, end: 20140425
  7. LEVOFOLINATE [Suspect]
     Active Substance: LEVOLEUCOVORIN CALCIUM
     Dosage: 330 MG, 1X/DAY, 330 MG/BODY (195.4 MG/M2)
     Route: 041
     Dates: start: 20140130, end: 20140130
  8. ELPLAT [Suspect]
     Active Substance: OXALIPLATIN
     Indication: PANCREATIC CARCINOMA
     Dosage: 140 MG, 1X/DAY, 140 MG/BODY (82.9 MG/M2)
     Route: 041
     Dates: start: 20140116, end: 20140116
  9. ELPLAT [Suspect]
     Active Substance: OXALIPLATIN
     Dosage: 140 MG, 1X/DAY, 140 MG/BODY (82.9 MG/M2)
     Route: 041
     Dates: start: 20140609, end: 20140609
  10. LEVOFOLINATE [Suspect]
     Active Substance: LEVOLEUCOVORIN CALCIUM
     Dosage: 330 MG, 1X/DAY, 330 MG/BODY (195.4 MG/M2)
     Route: 041
     Dates: start: 20140703, end: 20140703
  11. CAMPTO [Suspect]
     Active Substance: IRINOTECAN
     Dosage: 250 MG, 1X/DAY, 250 MG/BODY (148 MG/M2)
     Route: 041
     Dates: start: 20140220, end: 20140220
  12. CAMPTO [Suspect]
     Active Substance: IRINOTECAN
     Dosage: 250 MG, 1X/DAY, 250 MG/BODY (148 MG/M2)
     Route: 041
     Dates: start: 20140515, end: 20140515
  13. ELPLAT [Suspect]
     Active Substance: OXALIPLATIN
     Dosage: 140 MG, 1X/DAY, 140 MG/BODY (82.9 MG/M2)
     Route: 041
     Dates: start: 20140130, end: 20140130
  14. ELPLAT [Suspect]
     Active Substance: OXALIPLATIN
     Dosage: 140 MG, 1X/DAY, 140 MG/BODY (82.9 MG/M2)
     Route: 041
     Dates: start: 20140313, end: 20140313
  15. LEVOFOLINATE [Suspect]
     Active Substance: LEVOLEUCOVORIN CALCIUM
     Indication: PANCREATIC CARCINOMA
     Dosage: 330 MG, 1X/DAY, 330 MG/BODY (195.4 MG/M2)
     Route: 041
     Dates: start: 20140116, end: 20140116
  16. LEVOFOLINATE [Suspect]
     Active Substance: LEVOLEUCOVORIN CALCIUM
     Dosage: 330 MG, 1X/DAY, 330 MG/BODY (195.4 MG/M2)
     Route: 041
     Dates: start: 20140220, end: 20140220
  17. LEVOFOLINATE [Suspect]
     Active Substance: LEVOLEUCOVORIN CALCIUM
     Dosage: 330 MG, 1X/DAY, 330 MG/BODY (195.4 MG/M2)
     Route: 041
     Dates: start: 20140403, end: 20140403
  18. CAMPTO [Suspect]
     Active Substance: IRINOTECAN
     Dosage: 250 MG, 1X/DAY, 250 MG/BODY (148 MG/M2)
     Route: 041
     Dates: start: 20140403, end: 20140403
  19. ELPLAT [Suspect]
     Active Substance: OXALIPLATIN
     Dosage: 140 MG, 1X/DAY, 140 MG/BODY (82.9 MG/M2)
     Route: 041
     Dates: start: 20140220, end: 20140220
  20. LEVOFOLINATE [Suspect]
     Active Substance: LEVOLEUCOVORIN CALCIUM
     Dosage: 330 MG, 1X/DAY, 330 MG/BODY (195.4 MG/M2)
     Route: 041
     Dates: start: 20140313, end: 20140313
  21. LEVOFOLINATE [Suspect]
     Active Substance: LEVOLEUCOVORIN CALCIUM
     Dosage: 330 MG, 1X/DAY, 330 MG/BODY (195.4 MG/M2)
     Route: 041
     Dates: start: 20140425, end: 20140425
  22. CAMPTO [Suspect]
     Active Substance: IRINOTECAN
     Dosage: 250 MG, 1X/DAY, 250 MG/BODY (148 MG/M2)
     Route: 041
     Dates: start: 20140703, end: 20140703
  23. ELPLAT [Suspect]
     Active Substance: OXALIPLATIN
     Dosage: 140 MG, 1X/DAY, 140 MG/BODY (82.9 MG/M2)
     Route: 041
     Dates: start: 20140403, end: 20140403
  24. ELPLAT [Suspect]
     Active Substance: OXALIPLATIN
     Dosage: 140 MG, 1X/DAY, 140 MG/BODY (82.9 MG/M2)
     Route: 041
     Dates: start: 20140515, end: 20140515
  25. LEVOFOLINATE [Suspect]
     Active Substance: LEVOLEUCOVORIN CALCIUM
     Dosage: 330 MG, 1X/DAY, 330 MG/BODY (195.4 MG/M2)
     Route: 041
     Dates: start: 20140609, end: 20140609
  26. CAMPTO [Suspect]
     Active Substance: IRINOTECAN
     Dosage: 250 MG, 1X/DAY, 250 MG/BODY (148 MG/M2)
     Route: 041
     Dates: start: 20140313, end: 20140313
  27. CAMPTO [Suspect]
     Active Substance: IRINOTECAN
     Dosage: 250 MG, 1X/DAY, 250 MG/BODY (148 MG/M2)
     Route: 041
     Dates: start: 20140609, end: 20140609
  28. ELPLAT [Suspect]
     Active Substance: OXALIPLATIN
     Dosage: 140 MG, 1X/DAY, 140 MG/BODY (82.9 MG/M2)
     Route: 041
     Dates: start: 20140703, end: 20140703

REACTIONS (8)
  - Peripheral sensory neuropathy [Unknown]
  - Diarrhoea [Unknown]
  - Biliary tract infection [Unknown]
  - Neutrophil count decreased [Unknown]
  - Decreased appetite [Unknown]
  - Nausea [Unknown]
  - White blood cell count decreased [Unknown]
  - Fatigue [Unknown]

NARRATIVE: CASE EVENT DATE: 20140127
